FAERS Safety Report 19511587 (Version 1)
Quarter: 2021Q3

REPORT INFORMATION
  Report Type: Spontaneous
  Country: DE (occurrence: DE)
  Receive Date: 20210709
  Receipt Date: 20210709
  Transmission Date: 20211014
  Serious: Yes (Other)
  Sender: FDA-Public Use
  Company Number: DE-BAYER-2021-170014

PATIENT
  Age: 70 Year
  Sex: Female

DRUGS (26)
  1. GADOVIST [Suspect]
     Active Substance: GADOBUTROL
     Dosage: UNK
     Dates: start: 2016
  2. MAGNEVIST [Suspect]
     Active Substance: GADOPENTETATE DIMEGLUMINE
     Dosage: UNK
     Dates: start: 2003
  3. MAGNEVIST [Suspect]
     Active Substance: GADOPENTETATE DIMEGLUMINE
     Dosage: UNK
     Dates: start: 2008
  4. MULTIHANCE [Suspect]
     Active Substance: GADOBENATE DIMEGLUMINE
     Dosage: UNK
     Dates: start: 2009
  5. GADOVIST [Suspect]
     Active Substance: GADOBUTROL
     Dosage: UNK
     Dates: start: 2013
  6. PROHANCE [Suspect]
     Active Substance: GADOTERIDOL
     Dates: start: 2020
  7. MULTIHANCE [Suspect]
     Active Substance: GADOBENATE DIMEGLUMINE
     Dosage: UNK
     Dates: start: 2006
  8. GADOVIST [Suspect]
     Active Substance: GADOBUTROL
     Dosage: UNK
     Dates: start: 2010
  9. PROHANCE [Suspect]
     Active Substance: GADOTERIDOL
     Dosage: UNK
     Dates: start: 2021
  10. OMNISCAN [Suspect]
     Active Substance: GADODIAMIDE
     Dates: start: 2007
  11. DOTAREM [Suspect]
     Active Substance: GADOTERATE MEGLUMINE
     Dosage: UNK
     Dates: start: 2017
  12. MAGNEVIST [Suspect]
     Active Substance: GADOPENTETATE DIMEGLUMINE
     Dosage: UNK
     Dates: start: 1999
  13. MAGNEVIST [Suspect]
     Active Substance: GADOPENTETATE DIMEGLUMINE
     Dosage: UNK
     Dates: start: 2002
  14. MAGNEVIST [Suspect]
     Active Substance: GADOPENTETATE DIMEGLUMINE
     Dosage: UNK
     Dates: start: 2004
  15. MAGNEVIST [Suspect]
     Active Substance: GADOPENTETATE DIMEGLUMINE
     Dosage: UNK
     Dates: start: 2006
  16. GADOVIST [Suspect]
     Active Substance: GADOBUTROL
     Dosage: UNK
     Dates: start: 2011
  17. MAGNEVIST [Suspect]
     Active Substance: GADOPENTETATE DIMEGLUMINE
     Dosage: UNK
     Dates: start: 2001
  18. MULTIHANCE [Suspect]
     Active Substance: GADOBENATE DIMEGLUMINE
     Dosage: UNK
     Dates: start: 2005
  19. GADOVIST [Suspect]
     Active Substance: GADOBUTROL
     Dosage: UNK
     Dates: start: 2015
  20. GADOVIST [Suspect]
     Active Substance: GADOBUTROL
     Dosage: UNK
     Dates: start: 2017
  21. MAGNEVIST [Suspect]
     Active Substance: GADOPENTETATE DIMEGLUMINE
     Dosage: UNK
     Dates: start: 2005
  22. DOTAREM [Suspect]
     Active Substance: GADOTERATE MEGLUMINE
     Dosage: UNK
     Dates: start: 2018
  23. GADOVIST [Suspect]
     Active Substance: GADOBUTROL
     Dosage: UNK
     Dates: start: 2012
  24. MULTIHANCE [Suspect]
     Active Substance: GADOBENATE DIMEGLUMINE
     Dosage: UNK
     Dates: start: 2007
  25. DOTAREM [Suspect]
     Active Substance: GADOTERATE MEGLUMINE
     Dosage: UNK
     Dates: start: 2014
  26. DOTAREM [Suspect]
     Active Substance: GADOTERATE MEGLUMINE
     Dosage: UNK
     Dates: start: 2016

REACTIONS (12)
  - Depression [Unknown]
  - Pain in extremity [Unknown]
  - Anxiety [Unknown]
  - Mobility decreased [Unknown]
  - Sleep disorder [Unknown]
  - Pain [Unknown]
  - Ocular hyperaemia [Unknown]
  - Rash [Unknown]
  - Electric shock sensation [Unknown]
  - Burning sensation [Unknown]
  - Suicidal ideation [Unknown]
  - Peripheral swelling [Unknown]
